FAERS Safety Report 5022617-6 (Version None)
Quarter: 2006Q2

REPORT INFORMATION
  Report Type: 
  Country: None (occurrence: None)
  Receive Date: 20060605
  Receipt Date: 20060523
  Transmission Date: 20061013
  Serious: Yes (Death, Hospitalization, Other)
  Sender: FDA-Public Use
  Company Number: 2006057187

PATIENT
  Age: 57 Year
  Sex: Female
  Weight: 49 kg

DRUGS (8)
  1. IDARUBICIN HCL [Suspect]
     Indication: ACUTE MYELOID LEUKAEMIA
     Dosage: 18 MG (18 MG, QD), INTRAVENOUS
     Route: 042
     Dates: start: 20050614, end: 20050616
  2. CYTARABINE [Suspect]
     Indication: ACUTE MYELOID LEUKAEMIA
     Dosage: 280 MG (93.3 MG, TID), INTRAVENOUS
     Route: 042
     Dates: start: 20050614, end: 20050724
  3. MITOXANTRONE [Suspect]
     Indication: ACUTE MYELOID LEUKAEMIA
     Dosage: 10 MG (10 MG, QD), INTRAVENOUS
     Route: 042
     Dates: start: 20050720, end: 20050724
  4. VANCOMYCIN HYDROCHLORIDE [Concomitant]
  5. ITRACONAZOLE [Concomitant]
  6. SULFAMETHOXAZOLE + TRIMETHOPRIM [Concomitant]
  7. MEROPEN (MEROPENEM) [Concomitant]
  8. AMIKACIN SULFATE [Concomitant]

REACTIONS (12)
  - ASCITES [None]
  - ASTERIXIS [None]
  - COMA HEPATIC [None]
  - CONDITION AGGRAVATED [None]
  - DECREASED IMMUNE RESPONSIVENESS [None]
  - ENCEPHALOPATHY [None]
  - HEPATIC FAILURE [None]
  - HEPATIC FUNCTION ABNORMAL [None]
  - HEPATITIS FULMINANT [None]
  - OEDEMA PERIPHERAL [None]
  - PROTHROMBIN TIME PROLONGED [None]
  - WHITE BLOOD CELL COUNT DECREASED [None]
